FAERS Safety Report 24684090 (Version 1)
Quarter: 2024Q4

REPORT INFORMATION
  Report Type: Report from Study
  Country: US (occurrence: US)
  Receive Date: 20241202
  Receipt Date: 20241202
  Transmission Date: 20250114
  Serious: Yes (Other)
  Sender: ROCHE
  Company Number: US-ROCHE-10000144352

PATIENT
  Age: 74 Year
  Sex: Male

DRUGS (2)
  1. COTELLIC [Suspect]
     Active Substance: COBIMETINIB
     Indication: Malignant melanoma
     Dosage: TAKE 3 TABLET(S) BY MOUTH DAILY ON DAYS1-21 OF A 28 DAY TREATMENT CYCLE.
     Route: 048
  2. ZELBORAF [Suspect]
     Active Substance: VEMURAFENIB
     Indication: Malignant melanoma
     Dosage: TAKE 4 TABLET(S) BY MOUTH EVERY 12 HOURS WITH OR WITHOUT FOOD . SWALLOW WHOLE WITH A GLASS OF WATER.
     Route: 048

REACTIONS (1)
  - Pulmonary thrombosis [Unknown]
